FAERS Safety Report 5294958-9 (Version None)
Quarter: 2007Q2

REPORT INFORMATION
  Report Type: 
  Country: None (occurrence: None)
  Receive Date: 20070412
  Receipt Date: 20070402
  Transmission Date: 20071010
  Serious: Yes (Death, Hospitalization)
  Sender: FDA-Public Use
  Company Number: GB-ROCHE-480992

PATIENT
  Age: 71 Year
  Sex: Male

DRUGS (1)
  1. ROFERON-A [Suspect]
     Indication: DRUG USE FOR UNKNOWN INDICATION
     Route: 058

REACTIONS (4)
  - ASCITES [None]
  - COLLAPSE OF LUNG [None]
  - DISEASE PROGRESSION [None]
  - DRUG ADMINISTRATION ERROR [None]
